FAERS Safety Report 23181828 (Version 1)
Quarter: 2023Q4

REPORT INFORMATION
  Report Type: Spontaneous
  Country: HU (occurrence: HU)
  Receive Date: 20231114
  Receipt Date: 20231114
  Transmission Date: 20240110
  Serious: Yes (Disabling)
  Sender: FDA-Public Use
  Company Number: None

PATIENT
  Age: 42 Year
  Sex: Male
  Weight: 95 kg

DRUGS (1)
  1. NIQUITIN [Suspect]
     Active Substance: NICOTINE
     Indication: Smoking cessation therapy
     Dosage: 1 DOSAGE FORM
     Route: 048
     Dates: start: 2022, end: 2022

REACTIONS (2)
  - Cerebral disorder [Recovered/Resolved with Sequelae]
  - Headache [Recovered/Resolved with Sequelae]
